FAERS Safety Report 4821813-8 (Version None)
Quarter: 2005Q4

REPORT INFORMATION
  Report Type: 
  Country: None (occurrence: None)
  Receive Date: 20051103
  Receipt Date: 20051019
  Transmission Date: 20060501
  Serious: Yes (Death)
  Sender: FDA-Public Use
  Company Number: EWC050946077

PATIENT
  Age: 50 Year
  Sex: Female
  Weight: 60 kg

DRUGS (4)
  1. ZYPREXA [Suspect]
     Indication: SCHIZOPHRENIA
     Dosage: 15 MG/1 DAY
     Dates: start: 20050801
  2. ZYPREXA [Suspect]
     Indication: TARDIVE DYSKINESIA
     Dosage: 15 MG/1 DAY
     Dates: start: 20050801
  3. REXETIN (PAROXETINE) [Concomitant]
  4. RISPOLEPT (RISPERIDONE) [Concomitant]

REACTIONS (11)
  - ANXIETY [None]
  - BEREAVEMENT [None]
  - COMPLETED SUICIDE [None]
  - DEPRESSION [None]
  - DRUG TOLERANCE DECREASED [None]
  - FALL [None]
  - LOSS OF EMPLOYMENT [None]
  - MUSCULOSKELETAL STIFFNESS [None]
  - PARTNER STRESS [None]
  - RESTLESSNESS [None]
  - TARDIVE DYSKINESIA [None]
